FAERS Safety Report 4964511-2 (Version None)
Quarter: 2006Q2

REPORT INFORMATION
  Report Type: 
  Country: None (occurrence: None)
  Receive Date: 20060406
  Receipt Date: 20060329
  Transmission Date: 20061013
  Serious: Yes (Hospitalization)
  Sender: FDA-Public Use
  Company Number: US-KINGPHARMUSA00001-K200600393

PATIENT
  Age: 58 Year
  Sex: Female
  Weight: 65 kg

DRUGS (1)
  1. LORABID [Suspect]
     Indication: PHARYNGITIS
     Dosage: 400 MG, QD
     Route: 048
     Dates: start: 20060308, end: 20060310

REACTIONS (2)
  - ANGINA PECTORIS [None]
  - HYPOAESTHESIA [None]
